FAERS Safety Report 8505630-3 (Version None)
Quarter: 2012Q3

REPORT INFORMATION
  Report Type: 
  Country: None (occurrence: None)
  Receive Date: 20120712
  Receipt Date: 20120703
  Transmission Date: 20120928
  Serious: Yes (Other)
  Sender: FDA-Public Use
  Company Number: JP-VERTEX PHARMACEUTICALS INC.-AE-2012-009875

PATIENT
  Age: 57 Year
  Sex: Female

DRUGS (9)
  1. RIBAVIRIN [Concomitant]
     Route: 048
     Dates: start: 20120428
  2. TELAVIC (TELAPREVIR) [Suspect]
     Indication: HEPATITIS C
     Route: 048
     Dates: start: 20120428
  3. LAENNEC [Concomitant]
     Route: 058
  4. PEGINTERFERON ALFA-2B [Concomitant]
     Route: 058
     Dates: start: 20120601
  5. PEGINTERFERON ALFA-2B [Concomitant]
     Indication: HEPATITIS C
     Route: 058
     Dates: start: 20120428, end: 20120428
  6. PEGINTERFERON ALFA-2B [Concomitant]
     Route: 058
     Dates: start: 20120518, end: 20120525
  7. URSO 250 [Concomitant]
     Route: 048
  8. STRONGER MINOPHAGEN [Concomitant]
  9. PEGINTERFERON ALFA-2B [Concomitant]
     Route: 058
     Dates: start: 20120505, end: 20120511

REACTIONS (1)
  - WHITE BLOOD CELL COUNT DECREASED [None]
